FAERS Safety Report 11809752 (Version 2)
Quarter: 2024Q4

REPORT INFORMATION
  Report Type: Spontaneous
  Country: IN (occurrence: IN)
  Receive Date: 20151208
  Receipt Date: 20241108
  Transmission Date: 20250114
  Serious: Yes (Death, Life-Threatening, Other)
  Sender: ACCORD
  Company Number: None

PATIENT
  Age: 45 Year
  Sex: Male

DRUGS (4)
  1. TACROLIMUS [Suspect]
     Active Substance: TACROLIMUS
     Indication: Renal transplant
  2. MYCOPHENOLIC ACID [Suspect]
     Active Substance: MYCOPHENOLIC ACID
     Indication: Renal transplant
  3. IMMUNGLOBULIN [Concomitant]
     Route: 042
  4. RITUXIMAB [Concomitant]
     Active Substance: RITUXIMAB

REACTIONS (7)
  - Septic shock [Unknown]
  - Seizure [Unknown]
  - Cytomegalovirus infection [Unknown]
  - Respiratory distress [Unknown]
  - Thrombotic microangiopathy [Unknown]
  - Pancytopenia [Unknown]
  - Mucormycosis [Fatal]
